FAERS Safety Report 6659670-X (Version None)
Quarter: 2010Q1

REPORT INFORMATION
  Report Type: 
  Country: None (occurrence: None)
  Receive Date: 20100330
  Receipt Date: 20100322
  Transmission Date: 20100710
  Serious: Yes (Other)
  Sender: FDA-Public Use
  Company Number: SE-AMGEN-KDL401237

PATIENT
  Sex: Female

DRUGS (1)
  1. VECTIBIX [Suspect]
     Indication: DRUG USE FOR UNKNOWN INDICATION
     Dates: start: 20100112

REACTIONS (13)
  - BURNING SENSATION [None]
  - CHILLS [None]
  - DYSPHAGIA [None]
  - MALAISE [None]
  - NAIL DISORDER [None]
  - OEDEMA MOUTH [None]
  - OROPHARYNGEAL BLISTERING [None]
  - PRURITUS [None]
  - RASH VESICULAR [None]
  - SCAB [None]
  - SKIN DISCOMFORT [None]
  - SKIN FISSURES [None]
  - SKIN REACTION [None]
